FAERS Safety Report 8438473-X (Version None)
Quarter: 2012Q2

REPORT INFORMATION
  Report Type: 
  Country: None (occurrence: None)
  Receive Date: 20120615
  Receipt Date: 20120606
  Transmission Date: 20120825
  Serious: Yes (Hospitalization)
  Sender: FDA-Public Use
  Company Number: DE-AMGEN-DEUSP2012035786

PATIENT
  Age: 16 Year
  Sex: Female

DRUGS (2)
  1. HUMIRA [Concomitant]
     Dosage: UNK
  2. ENBREL [Suspect]
     Indication: JUVENILE ARTHRITIS
     Dosage: 0.4 MG/KG, 2X/WEEK
     Dates: start: 20110101, end: 20120401

REACTIONS (2)
  - JUVENILE ARTHRITIS [None]
  - DRUG EFFECT DECREASED [None]
